FAERS Safety Report 19743934 (Version 1)
Quarter: 2021Q3

REPORT INFORMATION
  Report Type: Spontaneous
  Country: US (occurrence: US)
  Receive Date: 20210823
  Receipt Date: 20210823
  Transmission Date: 20211014
  Serious: Yes (Other)
  Sender: FDA-Public Use
  Company Number: None

PATIENT
  Age: 49 Year
  Sex: Female
  Weight: 87.75 kg

DRUGS (7)
  1. EXCEDRIN MIGRAINE [Concomitant]
     Active Substance: ACETAMINOPHEN\ASPIRIN\CAFFEINE
  2. LISINOPRIL. [Concomitant]
     Active Substance: LISINOPRIL
  3. XANNX [Concomitant]
  4. LEVOTHYROXINE. [Concomitant]
     Active Substance: LEVOTHYROXINE
  5. LORATIDINE [Concomitant]
     Active Substance: LORATADINE
  6. DUPIXENT [Suspect]
     Active Substance: DUPILUMAB
     Indication: DERMATITIS
     Dosage: ?          OTHER FREQUENCY:2 DOSES FIRST THE;?
     Route: 030
     Dates: start: 20210819, end: 20210819
  7. ACYCLOVIR. [Concomitant]
     Active Substance: ACYCLOVIR

REACTIONS (10)
  - Rash [None]
  - Anxiety [None]
  - Arthralgia [None]
  - Musculoskeletal stiffness [None]
  - Hypoaesthesia [None]
  - Blister [None]
  - Paraesthesia [None]
  - Back pain [None]
  - Insomnia [None]
  - Paraesthesia oral [None]

NARRATIVE: CASE EVENT DATE: 20210819
